FAERS Safety Report 19221494 (Version 1)
Quarter: 2021Q2

REPORT INFORMATION
  Report Type: Spontaneous
  Country: US (occurrence: US)
  Receive Date: 20210505
  Receipt Date: 20210505
  Transmission Date: 20210717
  Serious: No
  Sender: FDA-Public Use
  Company Number: US-ASTRAZENECA-2021A279279

PATIENT
  Age: 66 Year
  Sex: Female

DRUGS (7)
  1. DUPIXENT [Suspect]
     Active Substance: DUPILUMAB
     Indication: ASTHMA
     Dosage: 300 MG EVERY OTHER WEEK ONCE/SINGLE ADMINISTRATION
     Route: 058
  2. UMECLIDINIUM [Concomitant]
     Active Substance: UMECLIDINIUM BROMIDE
  3. FASENRA [Suspect]
     Active Substance: BENRALIZUMAB
     Route: 058
  4. VILANTEROL [Concomitant]
     Active Substance: VILANTEROL TRIFENATATE
  5. TRELEGY ELLIPTA [Concomitant]
     Active Substance: FLUTICASONE FUROATE\UMECLIDINIUM BROMIDE\VILANTEROL TRIFENATATE
  6. DUPIXENT [Suspect]
     Active Substance: DUPILUMAB
     Indication: ASTHMA
     Dosage: 600.0MG ONCE/SINGLE ADMINISTRATION
     Route: 058
  7. FLUTICASONE FUROATE [Concomitant]
     Active Substance: FLUTICASONE FUROATE

REACTIONS (2)
  - Dyspnoea [Not Recovered/Not Resolved]
  - Product use issue [Unknown]
